FAERS Safety Report 9308086 (Version 1)
Quarter: 2013Q2

REPORT INFORMATION
  Report Type: Report from Study
  Country: US (occurrence: US)
  Receive Date: 20130524
  Receipt Date: 20130524
  Transmission Date: 20140414
  Serious: Yes (Other)
  Sender: FDA-Public Use
  Company Number: US-JNJFOC-20130515781

PATIENT
  Age: 70 Year
  Sex: Male

DRUGS (4)
  1. REMICADE [Suspect]
     Indication: PSORIATIC ARTHROPATHY
     Route: 042
     Dates: start: 20130418, end: 20130418
  2. BENADRYL [Suspect]
     Indication: URTICARIA
     Route: 065
     Dates: start: 20130418
  3. METHOTREXATE [Suspect]
     Indication: PSORIATIC ARTHROPATHY
     Route: 048
  4. PREDNISONE [Suspect]
     Indication: PRODUCT USED FOR UNKNOWN INDICATION
     Dosage: 3 VIALS
     Route: 065
     Dates: start: 20130418

REACTIONS (2)
  - Arthralgia [Unknown]
  - Diarrhoea [Not Recovered/Not Resolved]
